FAERS Safety Report 8054932 (Version 6)
Quarter: 2013Q1

REPORT INFORMATION
  Report Type: Spontaneous
  Country: US (occurrence: US)
  Receive Date: 20110726
  Receipt Date: 20130325
  Transmission Date: 20140127
  Serious: Yes (Hospitalization, Congenital Anomaly)
  Sender: FDA-Public Use
  Company Number: US-GLAXOSMITHKLINE-A0934114A

PATIENT
  Age: 0 Year
  Sex: Male
  Weight: 2.9 kg

DRUGS (5)
  1. PAXIL [Suspect]
     Indication: DEPRESSION
     Dosage: 10MG PER DAY
     Route: 064
     Dates: start: 1996, end: 2005
  2. REGLAN [Concomitant]
  3. PRENATAL VITAMIN [Concomitant]
  4. FOLIC ACID [Concomitant]
  5. TERBUTALINE [Concomitant]
     Route: 064

REACTIONS (2)
  - Arnold-Chiari malformation [Unknown]
  - Foetal exposure during pregnancy [Unknown]
